FAERS Safety Report 23272341 (Version 1)
Quarter: 2023Q4

REPORT INFORMATION
  Report Type: Spontaneous
  Country: US (occurrence: US)
  Receive Date: 20231207
  Receipt Date: 20231207
  Transmission Date: 20240110
  Serious: Yes (Hospitalization, Other)
  Sender: FDA-Public Use
  Company Number: US-SUN PHARMACEUTICAL INDUSTRIES LTD-2023R1-421982

PATIENT
  Age: 48 Year
  Sex: Female

DRUGS (1)
  1. METHIMAZOLE [Suspect]
     Active Substance: METHIMAZOLE
     Indication: Graves^ disease
     Dosage: 20 MILLIGRAM, DAILY
     Route: 065

REACTIONS (3)
  - Agranulocytosis [Recovered/Resolved]
  - Thyrotoxic periodic paralysis [Recovering/Resolving]
  - Refeeding syndrome [Recovered/Resolved]
